FAERS Safety Report 7420767-8 (Version None)
Quarter: 2011Q2

REPORT INFORMATION
  Report Type: 
  Country: None (occurrence: None)
  Receive Date: 20110418
  Receipt Date: 20110322
  Transmission Date: 20111010
  Serious: No
  Sender: FDA-Public Use
  Company Number: US-ROCHE-763106

PATIENT
  Sex: Female

DRUGS (1)
  1. TAMIFLU [Suspect]
     Route: 048
     Dates: start: 20110108, end: 20110108

REACTIONS (3)
  - MEDICATION ERROR [None]
  - PRODUCT QUALITY ISSUE [None]
  - GLOSSODYNIA [None]
